FAERS Safety Report 7919920-6 (Version None)
Quarter: 2011Q4

REPORT INFORMATION
  Report Type: 
  Country: None (occurrence: None)
  Receive Date: 20111117
  Receipt Date: 20110810
  Transmission Date: 20120403
  Serious: No
  Sender: FDA-Public Use
  Company Number: US-BAYER-2011-073077

PATIENT
  Age: 83 Year
  Sex: Female
  Weight: 75 kg

DRUGS (7)
  1. MULTI-VITAMIN [Concomitant]
  2. DIOVAN [Concomitant]
  3. DILTIAZEM HCL [Concomitant]
  4. CALCIUM [Concomitant]
     Indication: ARTHRALGIA
  5. UNKNOWN [Concomitant]
  6. ALEVE (CAPLET) [Suspect]
     Dosage: 2 DF, BID
     Route: 048
  7. ACETAMINOPHEN [Concomitant]

REACTIONS (1)
  - ARTHRALGIA [None]
